FAERS Safety Report 8610941-7 (Version None)
Quarter: 2012Q3

REPORT INFORMATION
  Report Type: 
  Country: None (occurrence: None)
  Receive Date: 20120822
  Receipt Date: 20120817
  Transmission Date: 20120928
  Serious: Yes (Hospitalization, Other)
  Sender: FDA-Public Use
  Company Number: PHHY2012BR071955

PATIENT
  Sex: Male
  Weight: 78 kg

DRUGS (8)
  1. ASPIRIN PREVENT [Concomitant]
     Indication: ANTICOAGULANT THERAPY
     Dosage: 1 TABLET, DAILY
     Route: 048
     Dates: start: 20111001
  2. RASILEZ AMLO [Suspect]
     Indication: HYPERTENSION
     Dosage: 2 TABLETS (300/10 MG), DAILY
     Route: 048
  3. FINASTERIDE [Concomitant]
     Indication: PROSTATOMEGALY
     Dosage: 1 TABLET, DAILY
     Route: 048
  4. DABIGATRAN [Concomitant]
     Indication: ANTICOAGULANT THERAPY
     Dosage: 2 TABLETS, DAILY
     Dates: start: 20111001
  5. LANTUS [Concomitant]
     Indication: DIABETES MELLITUS
     Dosage: 1 DF, DAILY
     Route: 030
  6. RASILEZ AMLO [Suspect]
     Indication: POLYURIA
  7. LOSARTAN POTASSIUM [Concomitant]
     Indication: NUTRITIONAL CONDITION ABNORMAL
     Dosage: 2 TABLETS, DAILY
     Route: 048
  8. METFORMIN HYDROCHLORIDE [Concomitant]
     Dosage: 1 DF, DAILY
     Route: 048
     Dates: start: 20120101

REACTIONS (5)
  - CLUMSINESS [None]
  - JOINT SWELLING [None]
  - MUSCULAR WEAKNESS [None]
  - OEDEMA PERIPHERAL [None]
  - CEREBROVASCULAR ACCIDENT [None]
